FAERS Safety Report 8830110 (Version 1)
Quarter: 2012Q4

REPORT INFORMATION
  Report Type: Spontaneous
  Country: US (occurrence: None)
  Receive Date: 20121004
  Receipt Date: 20121004
  Transmission Date: 20130627
  Serious: Yes (Hospitalization)
  Sender: FDA-Public Use
  Company Number: VAL_00872_2012

PATIENT
  Age: 47 Year
  Sex: Female
  Weight: 109.8 kg

DRUGS (5)
  1. METOPROLOL [Suspect]
     Dates: start: 20020805
  2. ALISKIREN [Suspect]
     Dosage: (DF)
     Route: 048
     Dates: start: 20110107
  3. SPIRONOLACTONE [Suspect]
     Dosage: (DF)
  4. DIOVAN [Suspect]
     Dosage: (DF)
  5. FUROSEMIDE [Concomitant]

REACTIONS (2)
  - Cardiac failure congestive [None]
  - Blood pressure increased [None]
